FAERS Safety Report 23653771 (Version 2)
Quarter: 2024Q3

REPORT INFORMATION
  Report Type: Spontaneous
  Country: GB (occurrence: GB)
  Receive Date: 20240320
  Receipt Date: 20240713
  Transmission Date: 20241016
  Serious: Yes (Other)
  Sender: TEVA
  Company Number: None

PATIENT
  Age: 66 Year
  Sex: Male
  Weight: 75 kg

DRUGS (3)
  1. ATORVASTATIN [Suspect]
     Active Substance: ATORVASTATIN
     Dosage: DURATION: 28 DAYS
     Route: 065
     Dates: start: 20240209, end: 20240308
  2. FLUCLOXACILLIN [Concomitant]
     Active Substance: FLUCLOXACILLIN
     Dosage: DURATION: 29 DAYS
     Dates: start: 20240112, end: 20240210
  3. HYLO FORTE [Concomitant]
     Indication: Penis disorder
     Dosage: TO BE USED AS DIRECTED IN THE AFFECTED EYE(S)
     Dates: start: 20240209

REACTIONS (1)
  - Deafness [Unknown]

NARRATIVE: CASE EVENT DATE: 20240301
